FAERS Safety Report 10187056 (Version 1)
Quarter: 2014Q2

REPORT INFORMATION
  Report Type: Spontaneous
  Country: FR (occurrence: FR)
  Receive Date: 20140522
  Receipt Date: 20140522
  Transmission Date: 20141212
  Serious: Yes (Hospitalization)
  Sender: FDA-Public Use
  Company Number: FR-JNJFOC-20140503594

PATIENT
  Age: 0 Year
  Sex: Female
  Weight: 3.24 kg

DRUGS (3)
  1. DUROGESIC [Suspect]
     Indication: SCIATICA
     Route: 064
     Dates: start: 2013, end: 20131227
  2. ACTISKENAN [Suspect]
     Indication: SCIATICA
     Route: 064
     Dates: start: 2013, end: 20131227
  3. EFFEXOR [Suspect]
     Indication: SCIATICA
     Route: 064
     Dates: start: 2013, end: 20131227

REACTIONS (6)
  - Drug withdrawal syndrome neonatal [Recovered/Resolved]
  - Respiratory disorder neonatal [Recovered/Resolved]
  - Feeding disorder neonatal [Recovered/Resolved]
  - Foetal exposure during pregnancy [Recovered/Resolved]
  - Hypocalcaemia [Unknown]
  - Weight gain poor [Unknown]
